FAERS Safety Report 7422075-8 (Version None)
Quarter: 2011Q2

REPORT INFORMATION
  Report Type: 
  Country: None (occurrence: None)
  Receive Date: 20110418
  Receipt Date: 20110405
  Transmission Date: 20111010
  Serious: Yes (Hospitalization)
  Sender: FDA-Public Use
  Company Number: FR-GENENTECH-311959

PATIENT
  Sex: Female
  Weight: 68 kg

DRUGS (4)
  1. RISEDRONIC ACID [Suspect]
     Indication: PRODUCT USED FOR UNKNOWN INDICATION
     Dosage: UNK
     Route: 065
     Dates: start: 20030101, end: 20090601
  2. RITUXIMAB [Suspect]
     Indication: RHEUMATOID ARTHRITIS
     Dosage: 1000 ML, UNK
     Route: 050
     Dates: start: 20090929, end: 20100722
  3. LEFLUNOMIDE [Suspect]
     Indication: RHEUMATOID ARTHRITIS
     Dosage: UNK
     Route: 048
     Dates: start: 20060101
  4. PREDNISONE [Suspect]
     Indication: RHEUMATOID ARTHRITIS
     Dosage: UNK
     Route: 048
     Dates: start: 19900101

REACTIONS (3)
  - PERIODONTAL DISEASE [None]
  - OSTEONECROSIS OF JAW [None]
  - GASTROENTERITIS [None]
